FAERS Safety Report 21016166 (Version 3)
Quarter: 2022Q4

REPORT INFORMATION
  Report Type: Spontaneous
  Country: IQ (occurrence: None)
  Receive Date: 20220628
  Receipt Date: 20221014
  Transmission Date: 20230113
  Serious: Yes (Other)
  Sender: FDA-Public Use
  Company Number: IQ-ROCHE-3125026

PATIENT
  Age: 52 Year
  Sex: Male
  Weight: 108 kg

DRUGS (8)
  1. MABTHERA [Suspect]
     Active Substance: RITUXIMAB
     Indication: Diffuse large B-cell lymphoma
     Dosage: RECEIVED 6 CYCLES IN 1ST LINE
     Route: 042
     Dates: start: 202108, end: 202111
  2. POLIVY [Suspect]
     Active Substance: POLATUZUMAB VEDOTIN-PIIQ
     Indication: Diffuse large B-cell lymphoma
     Dosage: 3RD DOSE (RECEIVED 3 CYCLES IN 2ND LINE SETTING)
     Route: 042
     Dates: start: 202204, end: 20220419
  3. POLIVY [Suspect]
     Active Substance: POLATUZUMAB VEDOTIN-PIIQ
     Dosage: 4TH DOSE
     Route: 065
     Dates: start: 20220510, end: 202206
  4. CYCLOPHOSPHAMIDE [Suspect]
     Active Substance: CYCLOPHOSPHAMIDE
     Indication: Diffuse large B-cell lymphoma
     Dosage: RECEIVED 6 CYCLES IN 1ST LINE
     Route: 065
     Dates: start: 202108, end: 202111
  5. DOXORUBICIN HYDROCHLORIDE [Suspect]
     Active Substance: DOXORUBICIN HYDROCHLORIDE
     Indication: Diffuse large B-cell lymphoma
     Dosage: RECEIVED 6 CYCLES IN 1ST LINE
     Route: 065
     Dates: start: 202108, end: 202111
  6. VINCRISTINE [Suspect]
     Active Substance: VINCRISTINE
     Indication: Diffuse large B-cell lymphoma
     Dosage: RECEIVED 6 CYCLES IN 1ST LINE
     Route: 065
     Dates: start: 202108, end: 202111
  7. PREDNISONE [Suspect]
     Active Substance: PREDNISONE
     Indication: Diffuse large B-cell lymphoma
     Dosage: RECEIVED 6 CYCLES IN 1ST LINE
     Route: 065
     Dates: start: 202108, end: 202111
  8. BENDAMUSTINE [Suspect]
     Active Substance: BENDAMUSTINE
     Indication: Diffuse large B-cell lymphoma
     Dosage: RECEIVED 3 CYCLES IN 2ND LINE
     Route: 065
     Dates: end: 202204

REACTIONS (2)
  - Disease progression [Unknown]
  - Drug ineffective [Unknown]

NARRATIVE: CASE EVENT DATE: 20220401
